FAERS Safety Report 9297715 (Version 1)
Quarter: 2013Q2

REPORT INFORMATION
  Report Type: Spontaneous
  Country: US (occurrence: US)
  Receive Date: 20130520
  Receipt Date: 20130520
  Transmission Date: 20140414
  Serious: No
  Sender: FDA-Public Use
  Company Number: US-PFIZER INC-2013153112

PATIENT
  Age: 60 Year
  Sex: Male

DRUGS (1)
  1. CAMPTOSAR [Suspect]
     Indication: RECTAL CANCER
     Dosage: 263 MG, CYCLIC, EVERY 7 DAYS

REACTIONS (2)
  - Disease progression [Unknown]
  - Rectal cancer [Unknown]
